FAERS Safety Report 18483828 (Version 2)
Quarter: 2020Q4

REPORT INFORMATION
  Report Type: Report from Study
  Country: AR (occurrence: AR)
  Receive Date: 20201109
  Receipt Date: 20201113
  Transmission Date: 20210114
  Serious: Yes (Death, Other)
  Sender: FDA-Public Use
  Company Number: AR-AMGEN-ARGSL2020178454

PATIENT
  Age: 18 Year
  Sex: Male

DRUGS (1)
  1. BLINCYTO [Suspect]
     Active Substance: BLINATUMOMAB
     Indication: ACUTE LYMPHOCYTIC LEUKAEMIA
     Dosage: UNK, QD
     Route: 065
     Dates: start: 20201031

REACTIONS (2)
  - Death [Fatal]
  - Tuberculosis [Unknown]

NARRATIVE: CASE EVENT DATE: 2020
